FAERS Safety Report 9951221 (Version 2)
Quarter: 2014Q1

REPORT INFORMATION
  Report Type: Report from Study
  Country: US (occurrence: US)
  Receive Date: 20140304
  Receipt Date: 20140304
  Transmission Date: 20141002
  Serious: No
  Sender: FDA-Public Use
  Company Number: US-ABBVIE-13P-163-1054134-00

PATIENT
  Age: 58 Year
  Sex: Female
  Weight: 69.01 kg

DRUGS (15)
  1. HUMIRA [Suspect]
     Indication: CROHN^S DISEASE
     Route: 058
     Dates: start: 20130110
  2. HUMIRA [Suspect]
     Indication: RHEUMATOID ARTHRITIS
  3. METHOTREXATE [Suspect]
     Indication: CROHN^S DISEASE
     Dates: start: 2012, end: 201211
  4. METHOTREXATE [Suspect]
     Dates: start: 201211
  5. PLAQUENIL [Concomitant]
     Indication: SYSTEMIC LUPUS ERYTHEMATOSUS
  6. ASACOL [Concomitant]
     Indication: CROHN^S DISEASE
  7. ESTRADIOL [Concomitant]
     Indication: HORMONE REPLACEMENT THERAPY
     Dosage: 1MG DAILY
  8. XANAX [Concomitant]
     Indication: ANXIETY
     Dosage: UP TO 3 TIMES/DAY
  9. ZOLOFT [Concomitant]
     Indication: DEPRESSION
     Dosage: AT BEDTIME
  10. FOLIC ACID [Concomitant]
     Indication: VITAMIN SUPPLEMENTATION
     Dosage: AT BEDTIME
  11. VITAMIN D [Concomitant]
     Indication: VITAMIN D DECREASED
  12. LORTAB [Concomitant]
     Indication: PAIN
     Dosage: 10/500; UP TO 6/DAY, TAKES MAYBE 3/DAY
  13. FUROSEMIDE [Concomitant]
     Indication: OEDEMA
     Dosage: 1-2
  14. CERTRILINE [Concomitant]
     Indication: DEPRESSION
  15. FLEXARIL [Concomitant]
     Indication: MUSCLE SPASMS

REACTIONS (7)
  - Malaise [Not Recovered/Not Resolved]
  - Abdominal pain upper [Not Recovered/Not Resolved]
  - Abdominal discomfort [Recovering/Resolving]
  - Pyrexia [Recovered/Resolved]
  - Gastric dilatation [Recovered/Resolved]
  - Constipation [Recovered/Resolved]
  - Pain [Recovered/Resolved]
